FAERS Safety Report 6850589-8 (Version None)
Quarter: 2010Q3

REPORT INFORMATION
  Report Type: 
  Country: None (occurrence: None)
  Receive Date: 20100716
  Receipt Date: 20071013
  Transmission Date: 20110219
  Serious: No
  Sender: FDA-Public Use
  Company Number: US-PFIZER INC-2007087422

PATIENT
  Sex: Female
  Weight: 69.09 kg

DRUGS (3)
  1. CHANTIX [Suspect]
     Indication: SMOKING CESSATION THERAPY
     Dates: start: 20070924
  2. PREMARIN [Concomitant]
  3. VITAMINS [Concomitant]

REACTIONS (2)
  - BREATH ODOUR [None]
  - HYPERCHLORHYDRIA [None]
